FAERS Safety Report 9429422 (Version 1)
Quarter: 2013Q3

REPORT INFORMATION
  Report Type: Spontaneous
  Country: US (occurrence: US)
  Receive Date: 20130730
  Receipt Date: 20130730
  Transmission Date: 20140515
  Serious: No
  Sender: FDA-Public Use
  Company Number: US-ABBOTT-13P-163-1057901-00

PATIENT
  Sex: Male
  Weight: 76.27 kg

DRUGS (10)
  1. NIASPAN (COATED) [Suspect]
     Indication: BLOOD CHOLESTEROL INCREASED
     Dates: start: 2011
  2. COUMADIN [Concomitant]
     Indication: THROMBOSIS
     Dates: start: 2010
  3. ASPIRIN [Concomitant]
     Indication: PROPHYLAXIS
     Dates: start: 2011
  4. ALLOPURINOL [Concomitant]
     Indication: GOUT
  5. METOPROLOL [Concomitant]
     Indication: HYPERTENSION
  6. ALLEGRA [Concomitant]
     Indication: HYPERSENSITIVITY
  7. PRILOSEC [Concomitant]
     Indication: GASTROOESOPHAGEAL REFLUX DISEASE
  8. FLOMAX [Concomitant]
     Indication: BENIGN PROSTATIC HYPERPLASIA
  9. CRESTOR [Concomitant]
     Indication: BLOOD CHOLESTEROL INCREASED
  10. RAMAPRIL [Concomitant]
     Indication: HYPERTENSION

REACTIONS (1)
  - Flushing [Not Recovered/Not Resolved]
